FAERS Safety Report 11368429 (Version 1)
Quarter: 2015Q3

REPORT INFORMATION
  Report Type: Spontaneous
  Country: US (occurrence: US)
  Receive Date: 20150811
  Receipt Date: 20150811
  Transmission Date: 20151125
  Serious: No
  Sender: FDA-Public Use
  Company Number: US-ELI_LILLY_AND_COMPANY-US201407005104

PATIENT

DRUGS (1)
  1. AXIRON [Suspect]
     Active Substance: TESTOSTERONE
     Indication: BLOOD TESTOSTERONE DECREASED
     Dosage: UNK
     Route: 065
     Dates: start: 2011, end: 201407

REACTIONS (7)
  - Feeling abnormal [Unknown]
  - Affect lability [Unknown]
  - Hyperhidrosis [Unknown]
  - Mental impairment [Unknown]
  - Incorrect product storage [Unknown]
  - Mood swings [Unknown]
  - Nausea [Unknown]
